FAERS Safety Report 16925867 (Version 1)
Quarter: 2019Q4

REPORT INFORMATION
  Report Type: Spontaneous
  Country: CA (occurrence: CA)
  Receive Date: 20191016
  Receipt Date: 20191016
  Transmission Date: 20200122
  Serious: Yes (Hospitalization, Other)
  Sender: FDA-Public Use
  Company Number: CA-PFIZER INC-2019442780

PATIENT
  Age: 79 Year
  Sex: Female
  Weight: 75 kg

DRUGS (7)
  1. ASA [Concomitant]
     Active Substance: ASPIRIN
     Dosage: UNK
  2. CIPROFLOXACIN. [Concomitant]
     Active Substance: CIPROFLOXACIN
     Dosage: UNK
  3. ATORVASTATIN CALCIUM. [Suspect]
     Active Substance: ATORVASTATIN CALCIUM
     Indication: MYOCARDIAL INFARCTION
     Dosage: 80 MG, 1X/DAY
     Route: 048
  4. BISOPROLOL [Concomitant]
     Active Substance: BISOPROLOL
     Dosage: UNK
  5. DULOXETINE. [Concomitant]
     Active Substance: DULOXETINE
     Dosage: UNK
  6. BRILINTA [Concomitant]
     Active Substance: TICAGRELOR
     Dosage: UNK
  7. RAMIPRIL. [Concomitant]
     Active Substance: RAMIPRIL
     Dosage: UNK

REACTIONS (8)
  - Pain [Recovered/Resolved]
  - Alanine aminotransferase increased [Recovered/Resolved]
  - Myopathy [Recovered/Resolved]
  - Gait disturbance [Recovered/Resolved]
  - Aspartate aminotransferase increased [Recovered/Resolved]
  - Blood creatine phosphokinase increased [Recovered/Resolved]
  - Myalgia [Recovered/Resolved]
  - Pain in extremity [Recovered/Resolved]
